FAERS Safety Report 11525349 (Version 2)
Quarter: 2015Q4

REPORT INFORMATION
  Report Type: Spontaneous
  Country: None (occurrence: None)
  Receive Date: 20150918
  Receipt Date: 20151007
  Transmission Date: 20160304
  Serious: Yes (Hospitalization, Other)
  Sender: FDA-Public Use
  Company Number: US-MDT-ADR-2015-01815

PATIENT
  Age: 58 Year
  Sex: Female

DRUGS (2)
  1. COMPOUNDED BACLOFEN INTRATHECAL 3000 MCG/ML [Suspect]
     Active Substance: BACLOFEN
     Dosage: 24 MCG/DAY
  2. FENTANYL 350 MCG/ML [Suspect]
     Active Substance: FENTANYL
     Dosage: 17 MCG/DAY

REACTIONS (1)
  - Overdose [None]
